FAERS Safety Report 5963063-8 (Version None)
Quarter: 2008Q4

REPORT INFORMATION
  Report Type: 
  Country: None (occurrence: None)
  Receive Date: 20081124
  Receipt Date: 20081112
  Transmission Date: 20090506
  Serious: Yes (Other)
  Sender: FDA-Public Use
  Company Number: US-ROCHE-594601

PATIENT
  Sex: Female
  Weight: 74.4 kg

DRUGS (6)
  1. BONIVA [Suspect]
     Indication: DRUG USE FOR UNKNOWN INDICATION
     Route: 042
     Dates: end: 20080921
  2. ASPIRIN [Concomitant]
  3. SIMVASTATIN [Concomitant]
     Dosage: 1 TABLET DAILY
  4. NEXIUM [Concomitant]
     Dosage: DRUG: NEXIUM 40 MG CAPSULE DELAYED RELEASE
  5. EXFORGE [Concomitant]
     Dosage: STRENGTH: 5-160 MG, DOSAGE REGIMEN: ONE TABLET EVERY DAY
     Route: 048
  6. TRIAMTEREN [Concomitant]
     Dosage: DRUG: TRIAMTERE-HCTZ, STRENGTH: 37.5-25 MG CAPSULE, DOSAGE REGIMEN: ONE CAPSULE EVERY OTHER DAY

REACTIONS (1)
  - RENAL FAILURE ACUTE [None]
